FAERS Safety Report 9912267 (Version 1)
Quarter: 2014Q1

REPORT INFORMATION
  Report Type: Report from Study
  Country: US (occurrence: US)
  Receive Date: 20140220
  Receipt Date: 20140220
  Transmission Date: 20141002
  Serious: Yes (Other)
  Sender: FDA-Public Use
  Company Number: US-ROCHE-1330208

PATIENT
  Sex: Male

DRUGS (15)
  1. AVASTIN [Suspect]
     Indication: AGE-RELATED MACULAR DEGENERATION
     Dosage: OD
     Route: 050
     Dates: end: 201103
  2. LUCENTIS [Suspect]
     Indication: AGE-RELATED MACULAR DEGENERATION
     Route: 050
  3. AMLODIPINE [Concomitant]
  4. ASPIRIN [Concomitant]
     Route: 065
  5. AVODART [Concomitant]
     Route: 065
  6. BISOPROLOL [Concomitant]
  7. CRESTOR [Concomitant]
  8. LEVOTHYROXINE [Concomitant]
  9. LEXAPRO [Concomitant]
  10. VIGAMOX [Concomitant]
     Dosage: X3 DAYS
     Route: 047
  11. TROPICAMIDE [Concomitant]
     Route: 065
  12. PHENYLEPHRINE [Concomitant]
     Route: 065
  13. BETADINE [Concomitant]
     Route: 065
  14. PROPARACAINE [Concomitant]
     Route: 065
  15. LIDOCAINE [Concomitant]

REACTIONS (3)
  - Macular oedema [Unknown]
  - Vision blurred [Unknown]
  - Cutis laxa [Unknown]
